FAERS Safety Report 22240699 (Version 3)
Quarter: 2023Q2

REPORT INFORMATION
  Report Type: Spontaneous
  Country: US (occurrence: US)
  Receive Date: 20230421
  Receipt Date: 20230606
  Transmission Date: 20230721
  Serious: No
  Sender: FDA-Public Use
  Company Number: US-AMERICAN REGENT INC-2023000902

PATIENT
  Age: 42 Year
  Sex: Female

DRUGS (98)
  1. VENOFER [Suspect]
     Active Substance: IRON SUCROSE
     Indication: Product used for unknown indication
     Dosage: 100 MG (20MG/ML SOLUTION), 3 TIMES A WEEK X 4 DOSES (4 GIVEN OF 4) (100 MG,3 IN 1 WK)
     Route: 042
     Dates: start: 20180615, end: 20180622
  2. VENOFER [Suspect]
     Active Substance: IRON SUCROSE
     Dosage: 100 MG (20MG/ML SOLUTION), EACH WEDNESDAY EVERY 2 WEEKS (100 MG,1 IN 2 WK)
     Route: 042
     Dates: start: 20180627, end: 20180725
  3. VENOFER [Suspect]
     Active Substance: IRON SUCROSE
     Dosage: 100 MG (20MG/ML SOLUTION), 3 TIMES A WEEK X 4 DOSES (4 GIVEN OF 4) (100 MG,3 IN 1 WK)
     Route: 042
     Dates: start: 20180815, end: 20180822
  4. VENOFER [Suspect]
     Active Substance: IRON SUCROSE
     Dosage: 100 MG (20MG/ML SOLUTION), EACH WEDNESDAY EVERY 2 WEEKS (100 MG,1 IN 2 WK)
     Route: 042
     Dates: start: 20180829, end: 20180911
  5. VENOFER [Suspect]
     Active Substance: IRON SUCROSE
     Dosage: 100 MG (20MG/ML SOLUTION), 3 TIMES A WEEK X 4 DOSES (4 GIVEN OF 4) (100 MG,3 IN 1 WK)
     Route: 042
     Dates: start: 20180914, end: 20180921
  6. VENOFER [Suspect]
     Active Substance: IRON SUCROSE
     Dosage: 100 MG (20MG/ML SOLUTION), EACH WEDNESDAY EVERY 2 WEEKS (100 MG,1 IN 2 WK)
     Route: 042
     Dates: start: 20180911, end: 20181115
  7. VENOFER [Suspect]
     Active Substance: IRON SUCROSE
     Dosage: 100 MG (20MG/ML SOLUTION), ONCE RESCHEDULED (100 MG,1 IN 1 D)
     Route: 042
     Dates: start: 20181120, end: 20181120
  8. VENOFER [Suspect]
     Active Substance: IRON SUCROSE
     Dosage: 100 MG (20MG/ML SOLUTION), 3 TIMES A WEEK X 4 DOSES (4 GIVEN OF 4) (100 MG,3 IN 1 WK)
     Route: 042
     Dates: start: 20190312, end: 20190320
  9. VENOFER [Suspect]
     Active Substance: IRON SUCROSE
     Dosage: 100 MG (20MG/ML SOLUTION), EACH WEDNESDAY EVERY 2 WEEKS (100 MG,1 IN 2 WK)
     Route: 042
     Dates: start: 20190327, end: 20190412
  10. VENOFER [Suspect]
     Active Substance: IRON SUCROSE
     Dosage: 100 MG (20MG/ML SOLUTION), 3 TIMES A WEEK X 4 DOSES (4 GIVEN OF 4) (100 MG,3 IN 1 WK)
     Route: 042
     Dates: start: 20190517, end: 20190524
  11. VENOFER [Suspect]
     Active Substance: IRON SUCROSE
     Dosage: 100 MG (20MG/ML SOLUTION), EACH WEDNESDAY EVERY 2 WEEKS (100 MG,1 IN 2 WK)
     Route: 042
     Dates: start: 20190605, end: 20190715
  12. VENOFER [Suspect]
     Active Substance: IRON SUCROSE
     Dosage: 100 MG (20MG/ML SOLUTION), 3 TIMES A WEEK X 4 DOSES (4 GIVEN OF 4) (100 MG,3 IN 1 WK)
     Route: 042
     Dates: start: 20190913, end: 20190923
  13. VENOFER [Suspect]
     Active Substance: IRON SUCROSE
     Dosage: 100 MG (20MG/ML SOLUTION), EACH WEDNESDAY EVERY 2 WEEKS (100 MG,1 IN 2 WK)
     Route: 042
     Dates: start: 20191002, end: 20191015
  14. VENOFER [Suspect]
     Active Substance: IRON SUCROSE
     Dosage: 100 MG (20MG/ML SOLUTION), 3 TIMES A WEEK X 4 DOSES (4 GIVEN OF 4) (100 MG,3 IN 1 WK)
     Route: 042
     Dates: start: 20191015, end: 20191023
  15. VENOFER [Suspect]
     Active Substance: IRON SUCROSE
     Dosage: 100 MG (20MG/ML SOLUTION), EACH WEDNESDAY EVERY 2 WEEKS (100 MG,1 IN 2 WK)
     Route: 042
     Dates: start: 20191106, end: 20191119
  16. VENOFER [Suspect]
     Active Substance: IRON SUCROSE
     Dosage: 100 MG (20MG/ML SOLUTION), 3 TIMES A WEEK X 4 DOSES (4 GIVEN OF 4) (100 MG,3 IN 1 WK)
     Route: 042
     Dates: start: 20191119, end: 20191126
  17. VENOFER [Suspect]
     Active Substance: IRON SUCROSE
     Dosage: 100 MG (20MG/ML SOLUTION), EACH WEDNESDAY EVERY 2 WEEKS (100 MG,1 IN 2 WK)
     Route: 042
     Dates: start: 20191218, end: 20200102
  18. VENOFER [Suspect]
     Active Substance: IRON SUCROSE
     Dosage: 100 MG (20MG/ML SOLUTION), ONCE RESCHEDULED (100 MG,1 IN 1 D)
     Route: 042
     Dates: start: 20191231, end: 20191231
  19. VENOFER [Suspect]
     Active Substance: IRON SUCROSE
     Dosage: 100 MG (20MG/ML SOLUTION), 3 TIMES A WEEK X 4 DOSES (4 GIVEN OF 4) (100 MG,3 IN 1 WK)
     Route: 042
     Dates: start: 20200102, end: 20200108
  20. VENOFER [Suspect]
     Active Substance: IRON SUCROSE
     Dosage: 100 MG (20MG/ML SOLUTION), EACH WEDNESDAY EVERY 2 WEEKS (100 MG,1 IN 2 WK)
     Route: 042
     Dates: start: 20200116, end: 20200122
  21. VENOFER [Suspect]
     Active Substance: IRON SUCROSE
     Dosage: 100 MG (20MG/ML SOLUTION), 3 TIMES A WEEK X 4 DOSES (4 GIVEN OF 4) (100 MG,3 IN 1 WK)
     Route: 042
     Dates: start: 20200226, end: 20200304
  22. VENOFER [Suspect]
     Active Substance: IRON SUCROSE
     Dosage: 100 MG (20MG/ML SOLUTION), EACH WEDNESDAY EVERY 2 WEEKS (100 MG,1 IN 2 WK)
     Route: 042
     Dates: start: 20200318, end: 20200414
  23. VENOFER [Suspect]
     Active Substance: IRON SUCROSE
     Dosage: 100 MG (20MG/ML SOLUTION), 3 TIMES A WEEK X 4 DOSES (4 GIVEN OF 4) (100 MG,3 IN 1 WK)
     Route: 042
     Dates: start: 20200414, end: 20200424
  24. VENOFER [Suspect]
     Active Substance: IRON SUCROSE
     Dosage: 100 MG (20MG/ML SOLUTION), EACH WEDNESDAY EVERY 2 WEEKS (100 MG,1 IN 2 WK)
     Route: 042
     Dates: start: 20200506, end: 20200519
  25. VENOFER [Suspect]
     Active Substance: IRON SUCROSE
     Dosage: 100 MG (20MG/ML SOLUTION), 3 TIMES A WEEK X 7 DOSES (7 GIVEN OF 7) (100 MG,3 IN 1 WK)
     Route: 042
     Dates: start: 20200519, end: 20200608
  26. VENOFER [Suspect]
     Active Substance: IRON SUCROSE
     Dosage: 100 MG (20MG/ML SOLUTION), EACH WEDNESDAY EVERY 2 WEEKS (100 MG,1 IN 2 WK)
     Route: 042
     Dates: start: 20200624, end: 20200624
  27. VENOFER [Suspect]
     Active Substance: IRON SUCROSE
     Dosage: 100 MG (20MG/ML SOLUTION), 3 TIMES A WEEK X 7 DOSES (7 GIVEN OF 7) (100 MG,3 IN 1 WK)
     Route: 042
     Dates: start: 20200625, end: 20200713
  28. VENOFER [Suspect]
     Active Substance: IRON SUCROSE
     Dosage: 100 MG (20MG/ML SOLUTION), EACH WEDNESDAY EVERY 2 WEEKS (100 MG,1 IN 2 WK)
     Route: 042
     Dates: start: 20200722, end: 20200825
  29. VENOFER [Suspect]
     Active Substance: IRON SUCROSE
     Dosage: 100 MG (20MG/ML SOLUTION), 3 TIMES A WEEK X 7 DOSES (7 GIVEN OF 7) (100 MG,3 IN 1 WK)
     Route: 042
     Dates: start: 20200825, end: 20200909
  30. VENOFER [Suspect]
     Active Substance: IRON SUCROSE
     Dosage: 100 MG (20MG/ML SOLUTION), EACH WEDNESDAY EVERY 2 WEEKS (100 MG,1 IN 2 WK)
     Route: 042
     Dates: start: 20200825, end: 20200925
  31. VENOFER [Suspect]
     Active Substance: IRON SUCROSE
     Dosage: 20MG/ML SOLUTION, EACH WEDNESDAY EVERY 2 WEEKS (100 MG,1 IN 2 WK)
     Route: 042
     Dates: start: 20200925, end: 20201215
  32. VENOFER [Suspect]
     Active Substance: IRON SUCROSE
     Dosage: 100 MG (20MG/ML SOLUTION), 3 TIMES A WEEK X 4 DOSES (4 GIVEN OF 4) (100 MG,3 IN 1 WK)
     Route: 042
     Dates: start: 20200928, end: 20201005
  33. VENOFER [Suspect]
     Active Substance: IRON SUCROSE
     Dosage: 100 MG (20MG/ML SOLUTION), ONCE RESCHEDULED (100 MG,3 IN 1 D)
     Route: 042
     Dates: start: 20201124, end: 20201124
  34. VENOFER [Suspect]
     Active Substance: IRON SUCROSE
     Dosage: 100 MG (20MG/ML SOLUTION), 3 TIMES A WEEK X 4 DOSES (4 GIVEN OF 4) (100 MG,3 IN 1 WK)
     Route: 042
     Dates: start: 20201215, end: 20201223
  35. VENOFER [Suspect]
     Active Substance: IRON SUCROSE
     Dosage: 100 MG (20MG/ML SOLUTION), EACH WEDNESDAY EVERY 2 WEEKS (100 MG,1 IN 2 WK)
     Route: 042
     Dates: start: 20201215, end: 20210318
  36. VENOFER [Suspect]
     Active Substance: IRON SUCROSE
     Dosage: 100 MG (20MG/ML SOLUTION), EACH WEDNESDAY EVERY 2 WEEKS (100 MG,1 IN 2 WK)
     Route: 042
     Dates: start: 20210318, end: 20210517
  37. VENOFER [Suspect]
     Active Substance: IRON SUCROSE
     Dosage: 100 MG (20MG/ML SOLUTION), 3 TIMES A WEEK X 4 DOSES (4 GIVEN OF 4) (100 MG,3 IN 1 WK)
     Route: 042
     Dates: start: 20210322, end: 20210329
  38. VENOFER [Suspect]
     Active Substance: IRON SUCROSE
     Dosage: 100 MG (20MG/ML SOLUTION), EACH WEDNESDAY EVERY 2 WEEKS (100 MG,1 IN 2 WK)
     Route: 042
     Dates: start: 20210517, end: 20210913
  39. VENOFER [Suspect]
     Active Substance: IRON SUCROSE
     Dosage: 100 MG (20MG/ML SOLUTION), 3 TIMES A WEEK X 4 DOSES (4 GIVEN OF 4) (100 MG,3 IN 1 WK)
     Route: 042
     Dates: start: 20210518, end: 20210526
  40. VENOFER [Suspect]
     Active Substance: IRON SUCROSE
     Dosage: 100 MG (20MG/ML SOLUTION), 3 TIMES A WEEK X 7 DOSES (7 GIVEN OF 7) (100 MG,3 IN 1 WK)
     Route: 042
     Dates: start: 20211118, end: 20211206
  41. VENOFER [Suspect]
     Active Substance: IRON SUCROSE
     Dosage: 100 MG (20MG/ML SOLUTION), 3 TIMES A WEEK X 4 DOSES (4 GIVEN OF 4) (100 MG,3 IN 1 WK)
     Route: 042
     Dates: start: 20211214, end: 20211222
  42. VENOFER [Suspect]
     Active Substance: IRON SUCROSE
     Dosage: 100 MG (20MG/ML SOLUTION), EACH WEDNESDAY EVERY 2 WEEKS (100 MG,1 IN 2 WK)
     Route: 042
     Dates: start: 20211214, end: 20220214
  43. MIRCERA [Suspect]
     Active Substance: METHOXY POLYETHYLENE GLYCOL-EPOETIN BETA
     Indication: Anaemia
     Dosage: 50 MCG/ 0.3 ML SOLUTION, EACH WEDNESDAY EVERY 2 WEEKS (50 MCG,1 IN 2 WK)
     Route: 042
     Dates: start: 20181205, end: 20181214
  44. MIRCERA [Suspect]
     Active Substance: METHOXY POLYETHYLENE GLYCOL-EPOETIN BETA
     Dosage: 75 MCG/ 0.3 ML SOLUTION, EACH WEDNESDAY EVERY 4 WEEKS (75 MCG,1 IN 4 WK)
     Route: 042
     Dates: start: 20181215, end: 20190213
  45. MIRCERA [Suspect]
     Active Substance: METHOXY POLYETHYLENE GLYCOL-EPOETIN BETA
     Dosage: 75 MCG/ 0.3 ML SOLUTION, EACH WEDNESDAY EVERY 2 WEEKS (75 MCG,1 IN 2 WK)
     Route: 042
     Dates: start: 20190214, end: 20190227
  46. MIRCERA [Suspect]
     Active Substance: METHOXY POLYETHYLENE GLYCOL-EPOETIN BETA
     Dosage: 150 MCG/ 0.3 ML SOLUTION, EACH WEDNESDAY EVERY 2 WEEKS (150 MCG,1 IN 2 WK)
     Route: 042
     Dates: start: 20190228, end: 20190311
  47. MIRCERA [Suspect]
     Active Substance: METHOXY POLYETHYLENE GLYCOL-EPOETIN BETA
     Dosage: 200 MCG/ 0.3 ML SOLUTION, EACH WEDNESDAY EVERY 2 WEEKS (200 MCG,1 IN 2 WK)
     Route: 042
     Dates: start: 20190312, end: 20190405
  48. MIRCERA [Suspect]
     Active Substance: METHOXY POLYETHYLENE GLYCOL-EPOETIN BETA
     Dosage: 150 MCG/ 0.3 ML SOLUTION, EACH WEDNESDAY EVERY 2 WEEKS (150 MCG,1 IN 2 WK)
     Route: 042
     Dates: start: 20190406, end: 20190507
  49. MIRCERA [Suspect]
     Active Substance: METHOXY POLYETHYLENE GLYCOL-EPOETIN BETA
     Dosage: 75 MCG/ 0.3 ML SOLUTION, EACH WEDNESDAY EVERY 2 WEEKS (75 MCG,1 IN 2 WK)
     Route: 042
     Dates: start: 20190508, end: 20190611
  50. MIRCERA [Suspect]
     Active Substance: METHOXY POLYETHYLENE GLYCOL-EPOETIN BETA
     Dosage: 50 MCG/ 0.3 ML SOLUTION, EACH WEDNESDAY EVERY 2 WEEKS (50 MCG,1 IN 2 WK)
     Route: 042
     Dates: start: 20190612, end: 20190906
  51. MIRCERA [Suspect]
     Active Substance: METHOXY POLYETHYLENE GLYCOL-EPOETIN BETA
     Dosage: 200 MCG/ 0.3 ML SOLUTION, EACH WEDNESDAY EVERY 2 WEEKS (200 MCG,1 IN 2 WK)
     Route: 042
     Dates: start: 20190907, end: 20191115
  52. MIRCERA [Suspect]
     Active Substance: METHOXY POLYETHYLENE GLYCOL-EPOETIN BETA
     Dosage: 200 MCG/ 0.3 ML SOLUTION, ONCE (200 MCG,1 IN 1 D)
     Route: 042
     Dates: start: 20191115, end: 20191115
  53. MIRCERA [Suspect]
     Active Substance: METHOXY POLYETHYLENE GLYCOL-EPOETIN BETA
     Dosage: 200 MCG/ 0.3 ML SOLUTION, EACH WEDNESDAY EVERY 2 WEEKS (200 MCG,1 IN 2 WK)
     Route: 042
     Dates: start: 20191116, end: 20191209
  54. MIRCERA [Suspect]
     Active Substance: METHOXY POLYETHYLENE GLYCOL-EPOETIN BETA
     Dosage: 150 MCG/ 0.3 ML SOLUTION, ONCE (150 MCG,1 IN 1 D)
     Route: 042
     Dates: start: 20191123, end: 20191123
  55. MIRCERA [Suspect]
     Active Substance: METHOXY POLYETHYLENE GLYCOL-EPOETIN BETA
     Dosage: 200 MCG/ 0.3 ML SOLUTION, ONCE, RESCHEDULED (200 MCG,1 IN 1 D)
     Route: 042
     Dates: start: 20191126, end: 20191126
  56. MIRCERA [Suspect]
     Active Substance: METHOXY POLYETHYLENE GLYCOL-EPOETIN BETA
     Dosage: 100 MCG/ 0.3 ML SOLUTION, EACH WEDNESDAY EVERY 2 WEEKS (100 MCG,1 IN 2 WK)
     Route: 042
     Dates: start: 20191210, end: 20200310
  57. MIRCERA [Suspect]
     Active Substance: METHOXY POLYETHYLENE GLYCOL-EPOETIN BETA
     Dosage: 100 MCG/ 0.3 ML SOLUTION, ONCE, RESCHEDULED (100 MCG,1 IN 1 D)
     Route: 042
     Dates: start: 20191231, end: 20191231
  58. MIRCERA [Suspect]
     Active Substance: METHOXY POLYETHYLENE GLYCOL-EPOETIN BETA
     Dosage: 150 MCG/ 0.3 ML SOLUTION, EACH WEDNESDAY EVERY 2 WEEKS (150 MCG,1 IN 2 WK)
     Route: 042
     Dates: start: 20200311, end: 20200330
  59. MIRCERA [Suspect]
     Active Substance: METHOXY POLYETHYLENE GLYCOL-EPOETIN BETA
     Dosage: 200 MCG/ 0.3 ML SOLUTION, EACH WEDNESDAY EVERY 2 WEEKS (200 MCG,1 IN 2 WK)
     Route: 042
     Dates: start: 20200331, end: 20200511
  60. MIRCERA [Suspect]
     Active Substance: METHOXY POLYETHYLENE GLYCOL-EPOETIN BETA
     Dosage: 200 MCG/ 0.3 ML SOLUTION, EACH WEDNESDAY EVERY 2 WEEKS (200 MCG,1 IN 2 WK)
     Route: 042
     Dates: start: 20200512, end: 20201109
  61. MIRCERA [Suspect]
     Active Substance: METHOXY POLYETHYLENE GLYCOL-EPOETIN BETA
     Dosage: 200 MCG/ 0.3 ML SOLUTION, ONCE (200 MCG,1 IN 1 D)
     Route: 042
     Dates: start: 20200725, end: 20200725
  62. MIRCERA [Suspect]
     Active Substance: METHOXY POLYETHYLENE GLYCOL-EPOETIN BETA
     Dosage: 150 MCG/ 0.3 ML SOLUTION, EACH WEDNESDAY EVERY 2 WEEKS (150 MCG,1 IN 2 WK)
     Route: 042
     Dates: start: 20201110, end: 20210810
  63. MIRCERA [Suspect]
     Active Substance: METHOXY POLYETHYLENE GLYCOL-EPOETIN BETA
     Dosage: 150 MCG/ 0.3 ML SOLUTION, ONCE RESCHEDULED (150 MCG,1 IN 1 D)
     Route: 042
     Dates: start: 20201124, end: 20201124
  64. MIRCERA [Suspect]
     Active Substance: METHOXY POLYETHYLENE GLYCOL-EPOETIN BETA
     Dosage: 100 MCG/ 0.3 ML SOLUTION, EACH WEDNESDAY EVERY 2 WEEKS (100 MCG,1 IN 2 WK)
     Route: 042
     Dates: start: 20210911, end: 20211011
  65. MIRCERA [Suspect]
     Active Substance: METHOXY POLYETHYLENE GLYCOL-EPOETIN BETA
     Dosage: 150 MCG/ 0.3 ML SOLUTION, EACH WEDNESDAY EVERY 2 WEEKS (150 MCG,1 IN 2 WK)
     Route: 042
     Dates: start: 20211012, end: 20220307
  66. MIRCERA [Suspect]
     Active Substance: METHOXY POLYETHYLENE GLYCOL-EPOETIN BETA
     Dosage: 150 MCG/ 0.3 ML SOLUTION, ONCE, RESCHEDULED (150 MCG,1 IN 1 D)
     Route: 042
     Dates: start: 20211123, end: 20211123
  67. MIRCERA [Suspect]
     Active Substance: METHOXY POLYETHYLENE GLYCOL-EPOETIN BETA
     Dosage: 150 MCG/ 0.3 ML SOLUTION, EACH WEDNESDAY EVERY 2 WEEKS (150 MCG,1 IN 2 WK)
     Route: 042
     Dates: start: 20220308
  68. MIRCERA [Suspect]
     Active Substance: METHOXY POLYETHYLENE GLYCOL-EPOETIN BETA
     Dosage: 2ND TX EVERY 2 WEEKS (150 MCG,1 IN 2 WK)
     Route: 042
     Dates: start: 20220504, end: 20220601
  69. MIRCERA [Suspect]
     Active Substance: METHOXY POLYETHYLENE GLYCOL-EPOETIN BETA
     Dosage: 2ND TX EVERY 2 WEEKS (75 MCG,1 IN 2 WK)
     Route: 042
     Dates: start: 20220615, end: 20220907
  70. MIRCERA [Suspect]
     Active Substance: METHOXY POLYETHYLENE GLYCOL-EPOETIN BETA
     Dosage: 2ND TX EVERY 2 WEEKS (150 MCG,1 IN 2 WK)
     Route: 042
     Dates: start: 20220922, end: 20221019
  71. MIRCERA [Suspect]
     Active Substance: METHOXY POLYETHYLENE GLYCOL-EPOETIN BETA
     Dosage: 2ND TX EVERY 2 WEEKS (200 MCG,1 IN 2 WK)
     Route: 042
     Dates: start: 20221102, end: 20230301
  72. HUMAN IMMUNOGLOBULIN G [Concomitant]
     Active Substance: HUMAN IMMUNOGLOBULIN G
     Indication: Parvovirus infection
     Dosage: UNK
     Route: 042
  73. HEPARIN [Concomitant]
     Active Substance: HEPARIN SODIUM
     Indication: Product used for unknown indication
     Dosage: 1000 UNITS/ML SOLUTION, 3 TO 4 TIMES A WEEK PRE DIALYSIS
     Route: 042
     Dates: start: 20210609
  74. ARANESP [Concomitant]
     Active Substance: DARBEPOETIN ALFA
     Indication: Product used for unknown indication
     Dosage: 10-40 MCG
     Route: 065
     Dates: start: 20161019, end: 20220308
  75. ZEMPLAR [Concomitant]
     Active Substance: PARICALCITOL
     Indication: Product used for unknown indication
     Dosage: 5MCG/ML SOLUTION, THREE TIME A WEEK (3 IN 1 WK
     Route: 042
     Dates: start: 20150325, end: 20150407
  76. ZEMPLAR [Concomitant]
     Active Substance: PARICALCITOL
     Dosage: 5MCG/ML SOLUTION, THREE TIME A WEEK (3 IN 1 WK
     Route: 042
     Dates: start: 20190927, end: 20191029
  77. ZEMPLAR [Concomitant]
     Active Substance: PARICALCITOL
     Dosage: 5MCG/ML SOLUTION, THREE TIME A WEEK (3 IN 1 WK
     Route: 042
     Dates: start: 20150407, end: 20150514
  78. ZEMPLAR [Concomitant]
     Active Substance: PARICALCITOL
     Dosage: 5MCG/ML SOLUTION, THREE TIME A WEEK (3 IN 1 WK
     Route: 042
     Dates: start: 20150514, end: 20150913
  79. ZEMPLAR [Concomitant]
     Active Substance: PARICALCITOL
     Dosage: 5MCG/ML SOLUTION, THREE TIME A WEEK (3 IN 1 WK
     Route: 042
     Dates: start: 20150913, end: 20161107
  80. ZEMPLAR [Concomitant]
     Active Substance: PARICALCITOL
     Dosage: 5MCG/ML SOLUTION, THREE TIME A WEEK (3 IN 1 WK
     Route: 042
     Dates: start: 20170118, end: 20181009
  81. ZEMPLAR [Concomitant]
     Active Substance: PARICALCITOL
     Dosage: 5MCG/ML SOLUTION, THREE TIME A WEEK (3 IN 1 WK
     Route: 042
     Dates: start: 20181109, end: 20190927
  82. ZEMPLAR [Concomitant]
     Active Substance: PARICALCITOL
     Dosage: 5MCG/ML SOLUTION, THREE TIME A WEEK (3 IN 1 WK
     Route: 042
     Dates: start: 20190927, end: 20191029
  83. CARVEDILOL [Concomitant]
     Active Substance: CARVEDILOL
     Indication: Product used for unknown indication
     Dosage: 25 MILLIGRAM, 2 IN 1D
     Route: 048
     Dates: start: 20190211
  84. HYDRALAZINE [Concomitant]
     Active Substance: HYDRALAZINE HYDROCHLORIDE
     Indication: Product used for unknown indication
     Dosage: 50 MILLIGRAM, 3 IN 1 D
     Route: 048
     Dates: start: 20210129
  85. ISOSORBIDE DINITRATE [Concomitant]
     Active Substance: ISOSORBIDE DINITRATE
     Indication: Product used for unknown indication
     Dosage: 30 MILLIGRAM, QD
     Route: 048
     Dates: start: 20210129
  86. LASIX [Concomitant]
     Active Substance: FUROSEMIDE
     Indication: Product used for unknown indication
     Dosage: 40 MILLIGRAM, 2 IN 1 D
     Route: 048
     Dates: start: 20190426
  87. LISINOPRIL [Concomitant]
     Active Substance: LISINOPRIL
     Indication: Product used for unknown indication
     Dosage: 10 MILLIGRAM, QD
     Route: 048
     Dates: start: 20190211
  88. PROBIOTICS NOS [Concomitant]
     Active Substance: PROBIOTICS NOS
     Indication: Product used for unknown indication
     Dosage: UNK QD
     Route: 048
     Dates: start: 20200131
  89. LIQUACEL [Concomitant]
     Indication: Product used for unknown indication
     Dosage: 3 TO 4 TIMES A WEEK
     Route: 048
     Dates: start: 20200210, end: 20200211
  90. VANCOMYCIN [Concomitant]
     Active Substance: VANCOMYCIN
     Indication: Product used for unknown indication
     Dosage: 1GM/200ML NACL 0.9 % SOLUTION, EACH MONDAY, WEDNESDAY AND FRIDAY (3 IN 1 WK)
     Route: 042
     Dates: start: 20210906, end: 20210906
  91. VANCOMYCIN [Concomitant]
     Active Substance: VANCOMYCIN
     Dosage: 1GM/200ML NACL 0.9 % SOLUTION, EACH MONDAY, WEDNESDAY AND FRIDAY X 18 DOSES  (2 GIVEN OF 18) (3 IN 1
     Route: 042
     Dates: start: 20210910, end: 20210910
  92. VANCOMYCIN [Concomitant]
     Active Substance: VANCOMYCIN
     Dosage: 1GM/200ML NACL 0.9 % SOLUTION, EACH MONDAY, WEDNESDAY AND FRIDAY X 18 DOSES (7 GIVEN OF 18) (3 IN 1
     Route: 042
     Dates: start: 202109, end: 20210922
  93. VANCOMYCIN [Concomitant]
     Active Substance: VANCOMYCIN
     Dosage: 1GM/200ML NACL 0.9 % SOLUTION, EACH MONDAY, WEDNESDAY AND FRIDAY X 18 DOSES (10 GIVEN OF 18) (3 IN 1
     Route: 042
     Dates: start: 20210922, end: 20210930
  94. VANCOMYCIN [Concomitant]
     Active Substance: VANCOMYCIN
     Dosage: 1GM SOLUTION (3-4 TIMES A WEEK)
     Route: 042
     Dates: start: 20210930, end: 20210930
  95. VANCOMYCIN [Concomitant]
     Active Substance: VANCOMYCIN
     Dosage: 500 MG POWDER FOR INJECTION, 3-4 TIMES A WEEK X 18 DOSES (18 GIVEN OF 18)
     Route: 042
     Dates: start: 20210930, end: 20211018
  96. ATENOLOL [Concomitant]
     Active Substance: ATENOLOL
     Indication: Product used for unknown indication
     Dosage: 50 MILLIGRAM, QD ONCE (AT BEDTIME)
     Route: 048
     Dates: start: 20150501, end: 20190426
  97. WARFARIN [Concomitant]
     Active Substance: WARFARIN
     Indication: Product used for unknown indication
     Dosage: ONCE A DAY 1 1/2 TABLET (1 IN 1 D)
     Route: 048
     Dates: start: 20150501, end: 20190426
  98. RENAL VITE PLUS [Concomitant]
     Indication: Product used for unknown indication
     Dosage: ONCE A DAY (AS RENAL CAPS)
     Route: 048
     Dates: start: 20150501, end: 20190426

REACTIONS (3)
  - Haemoglobin decreased [Unknown]
  - Parvovirus B19 infection [Unknown]
  - Vitamin B12 deficiency [Unknown]

NARRATIVE: CASE EVENT DATE: 20221101
